FAERS Safety Report 16293939 (Version 1)
Quarter: 2019Q2

REPORT INFORMATION
  Report Type: Spontaneous
  Country: US (occurrence: US)
  Receive Date: 20190509
  Receipt Date: 20190509
  Transmission Date: 20190711
  Serious: No
  Sender: FDA-Public Use
  Company Number: US-ROCHE-2116137

PATIENT
  Age: 58 Year
  Sex: Male
  Weight: 104.42 kg

DRUGS (3)
  1. WARFIN [Concomitant]
     Active Substance: WARFARIN
     Dosage: ONGOING: YES
     Route: 065
  2. MELOXICAM. [Concomitant]
     Active Substance: MELOXICAM
     Indication: ARTHRALGIA
     Dosage: TAKE AS NEEDED ;ONGOING: YES
     Route: 065
  3. ESBRIET [Suspect]
     Active Substance: PIRFENIDONE
     Indication: IDIOPATHIC PULMONARY FIBROSIS
     Route: 065
     Dates: start: 20180101

REACTIONS (2)
  - Hypotension [Not Recovered/Not Resolved]
  - Gastric disorder [Not Recovered/Not Resolved]

NARRATIVE: CASE EVENT DATE: 201801
